FAERS Safety Report 25684970 (Version 1)
Quarter: 2025Q3

REPORT INFORMATION
  Report Type: Spontaneous
  Country: US (occurrence: None)
  Receive Date: 20250815
  Receipt Date: 20250815
  Transmission Date: 20251021
  Serious: Yes (Hospitalization)
  Sender: FDA-CTU
  Company Number: None

PATIENT
  Age: 74 Year
  Sex: Male
  Weight: 70.2 kg

DRUGS (4)
  1. FLUOROURACIL [Suspect]
     Active Substance: FLUOROURACIL
     Dates: end: 20250801
  2. IRINOTECAN [Suspect]
     Active Substance: IRINOTECAN
     Dates: end: 20250730
  3. LEUCOVORIN CALCIUM [Suspect]
     Active Substance: LEUCOVORIN CALCIUM
     Dates: end: 20250730
  4. OXALIPLATIN [Suspect]
     Active Substance: OXALIPLATIN
     Dates: end: 20250730

REACTIONS (5)
  - Haematochezia [None]
  - Proctitis [None]
  - Rectal cancer [None]
  - White blood cell count increased [None]
  - Therapy cessation [None]

NARRATIVE: CASE EVENT DATE: 20250802
